FAERS Safety Report 8374866-7 (Version None)
Quarter: 2012Q2

REPORT INFORMATION
  Report Type: 
  Country: None (occurrence: None)
  Receive Date: 20120521
  Receipt Date: 20120210
  Transmission Date: 20120825
  Serious: No
  Sender: FDA-Public Use
  Company Number: US-ASTRAZENECA-2012SE13141

PATIENT
  Sex: Female

DRUGS (3)
  1. ANASTROZOLE [Concomitant]
     Dosage: UNKNOWN
  2. PRILOSEC OTC [Suspect]
     Indication: GASTROOESOPHAGEAL REFLUX DISEASE
     Route: 048
     Dates: start: 20111110
  3. PRILOSEC OTC [Suspect]
     Dosage: 1 TABLET, CYCLIC 1/D
     Route: 048

REACTIONS (1)
  - MULTI-ORGAN DISORDER [None]
